FAERS Safety Report 14672746 (Version 1)
Quarter: 2018Q1

REPORT INFORMATION
  Report Type: Spontaneous
  Country: US (occurrence: US)
  Receive Date: 20180323
  Receipt Date: 20180323
  Transmission Date: 20180509
  Serious: Yes (Death, Other)
  Sender: FDA-Public Use
  Company Number: US-ASTELLAS-2018US004548

PATIENT
  Age: 79 Year
  Sex: Male

DRUGS (2)
  1. XTANDI [Suspect]
     Active Substance: ENZALUTAMIDE
     Indication: PROSTATE CANCER
     Route: 048
     Dates: start: 20180109, end: 20180308
  2. BICALUTAMIDE. [Concomitant]
     Active Substance: BICALUTAMIDE
     Indication: PRODUCT USED FOR UNKNOWN INDICATION
     Dosage: UNK UNK, UNKNOWN FREQ.
     Route: 065

REACTIONS (6)
  - Prostatic specific antigen increased [Not Recovered/Not Resolved]
  - Sepsis [Fatal]
  - Fatigue [Not Recovered/Not Resolved]
  - Prostate cancer [Fatal]
  - Organ failure [Fatal]
  - Diverticulitis [Fatal]

NARRATIVE: CASE EVENT DATE: 201801
